FAERS Safety Report 10081535 (Version 3)
Quarter: 2014Q2

REPORT INFORMATION
  Report Type: Spontaneous
  Country: US (occurrence: US)
  Receive Date: 20140416
  Receipt Date: 20140610
  Transmission Date: 20141212
  Serious: Yes (Hospitalization)
  Sender: FDA-Public Use
  Company Number: US-PFIZER INC-2014102669

PATIENT
  Sex: Female

DRUGS (1)
  1. VFEND [Suspect]
     Dosage: UNK

REACTIONS (5)
  - Brain injury [Unknown]
  - Pain [Unknown]
  - Nasal discomfort [Unknown]
  - Oral pain [Unknown]
  - Cough [Unknown]
